FAERS Safety Report 12626303 (Version 2)
Quarter: 2016Q3

REPORT INFORMATION
  Report Type: Spontaneous
  Country: FR (occurrence: FR)
  Receive Date: 20160805
  Receipt Date: 20160815
  Transmission Date: 20161109
  Serious: Yes (Hospitalization)
  Sender: FDA-Public Use
  Company Number: FR-BAYER-2016-148957

PATIENT
  Age: 68 Year
  Sex: Female

DRUGS (5)
  1. HUMALOG [Concomitant]
     Active Substance: INSULIN LISPRO
  2. STIVARGA [Suspect]
     Active Substance: REGORAFENIB
     Indication: COLORECTAL CANCER METASTATIC
     Dosage: 120 MG, QD
     Route: 048
     Dates: start: 20160706, end: 20160720
  3. LEVOTHYROX [Concomitant]
     Active Substance: LEVOTHYROXINE
  4. LEVEMIR [Concomitant]
     Active Substance: INSULIN DETEMIR
  5. METHYLPREDNISOLONE. [Concomitant]
     Active Substance: METHYLPREDNISOLONE
     Dosage: UNK

REACTIONS (5)
  - Pyrexia [Recovered/Resolved]
  - Confusional state [Recovered/Resolved]
  - Facial paralysis [Recovered/Resolved]
  - Hemiparesis [Recovered/Resolved]
  - Rash morbilliform [Recovering/Resolving]

NARRATIVE: CASE EVENT DATE: 20160715
